FAERS Safety Report 5888237-6 (Version None)
Quarter: 2008Q3

REPORT INFORMATION
  Report Type: 
  Country: None (occurrence: None)
  Receive Date: 20080918
  Receipt Date: 20080916
  Transmission Date: 20090109
  Serious: Yes (Life-Threatening)
  Sender: FDA-Public Use
  Company Number: IT-ASTRAZENECA-2008AC02489

PATIENT
  Age: 64 Year
  Sex: Female

DRUGS (1)
  1. PROPOFOL [Suspect]
     Indication: GENERAL ANAESTHESIA
     Route: 042

REACTIONS (2)
  - MITOCHONDRIAL MYOPATHY [None]
  - PROPOFOL INFUSION SYNDROME [None]
